FAERS Safety Report 8401622-3 (Version None)
Quarter: 2012Q2

REPORT INFORMATION
  Report Type: 
  Country: None (occurrence: None)
  Receive Date: 20120601
  Receipt Date: 20120530
  Transmission Date: 20120825
  Serious: Yes (Other)
  Sender: FDA-Public Use
  Company Number: PHEH2012US010986

PATIENT
  Sex: Female

DRUGS (1)
  1. ZOMETA [Suspect]
     Indication: BREAST CANCER
     Dosage: UNK UKN, Q6 WEEKS
     Route: 042
     Dates: start: 20120119

REACTIONS (3)
  - PAIN [None]
  - BONE NEOPLASM MALIGNANT [None]
  - NEOPLASM MALIGNANT [None]
